FAERS Safety Report 8859152 (Version 1)
Quarter: 2012Q4

REPORT INFORMATION
  Report Type: Spontaneous
  Country: US (occurrence: None)
  Receive Date: 20121024
  Receipt Date: 20121024
  Transmission Date: 20130627
  Serious: Yes (Other)
  Sender: FDA-Public Use
  Company Number: None

PATIENT
  Age: 42 Year
  Sex: Male
  Weight: 78.93 kg

DRUGS (2)
  1. JANUMET [Suspect]
     Indication: TYPE II DIABETES MELLITUS
     Dosage: 50/1000MG QD PO
     Route: 048
     Dates: start: 20121001, end: 20121016
  2. JANUMET [Suspect]
     Indication: TYPE II DIABETES MELLITUS
     Dosage: 50/500mg qd po
     Route: 048

REACTIONS (3)
  - Visual impairment [None]
  - Vision blurred [None]
  - Visual acuity reduced [None]
